FAERS Safety Report 5595055-5 (Version None)
Quarter: 2008Q1

REPORT INFORMATION
  Report Type: 
  Country: None (occurrence: None)
  Receive Date: 20080117
  Receipt Date: 20080110
  Transmission Date: 20080703
  Serious: Yes (Death, Hospitalization)
  Sender: FDA-Public Use
  Company Number: US-AVENTIS-200810500GDDC

PATIENT
  Age: 75 Year
  Sex: Male
  Weight: 84.37 kg

DRUGS (12)
  1. TAXOTERE [Suspect]
     Route: 042
     Dates: start: 20071203, end: 20071224
  2. OXALIPLATIN [Suspect]
     Route: 042
     Dates: start: 20071203, end: 20071224
  3. CAPECITABINE [Suspect]
     Route: 048
     Dates: start: 20071203, end: 20071221
  4. RADIATION THERAPY [Suspect]
     Dosage: DOSE: UNK
  5. LIPITOR [Concomitant]
     Dates: start: 20020101
  6. TRICOR                             /00090101/ [Concomitant]
     Dates: start: 20020101
  7. ENALAPRIL MALEATE [Concomitant]
     Indication: HYPERTENSION
     Dates: start: 20020101
  8. HYDROCHLOROTHIAZIDE [Concomitant]
     Indication: HYPERTENSION
     Dates: start: 20020101
  9. PRILOSEC                           /00661201/ [Concomitant]
     Dates: start: 20070101
  10. POTASSIUM CHLORIDE [Concomitant]
     Dates: start: 20020101
  11. MULTI-VITAMINS [Concomitant]
     Dosage: DOSE QUANTITY: 1
     Dates: start: 20070101
  12. BETIMOL                            /00371201/ [Concomitant]
     Indication: GLAUCOMA
     Dates: start: 20070101

REACTIONS (6)
  - DEHYDRATION [None]
  - DIARRHOEA [None]
  - NAUSEA [None]
  - PNEUMONIA ASPIRATION [None]
  - RENAL FAILURE [None]
  - VOMITING [None]
